FAERS Safety Report 9875420 (Version 2)
Quarter: 2014Q1

REPORT INFORMATION
  Report Type: Other
  Country: US (occurrence: US)
  Receive Date: 20140206
  Receipt Date: 20140206
  Transmission Date: 20141002
  Serious: No
  Sender: FDA-Public Use
  Company Number: US-ACORDA-ACO_36898_2013

PATIENT
  Sex: Female

DRUGS (1)
  1. AMPYRA [Suspect]
     Indication: MULTIPLE SCLEROSIS
     Dosage: 10 MG, QD
     Route: 065
     Dates: start: 201205, end: 201306

REACTIONS (4)
  - Local swelling [Recovered/Resolved]
  - Bladder dilatation [Recovered/Resolved]
  - Insomnia [Recovering/Resolving]
  - Oropharyngeal pain [Recovered/Resolved]
